FAERS Safety Report 12598056 (Version 1)
Quarter: 2016Q3

REPORT INFORMATION
  Report Type: Spontaneous
  Country: US (occurrence: None)
  Receive Date: 20160726
  Receipt Date: 20160726
  Transmission Date: 20161109
  Serious: No
  Sender: FDA-Public Use
  Company Number: None

PATIENT
  Age: 64 Year
  Sex: Female

DRUGS (2)
  1. ENBREL [Suspect]
     Active Substance: ETANERCEPT
     Indication: MAJOR DEPRESSION
  2. ENBREL [Suspect]
     Active Substance: ETANERCEPT
     Indication: ATROPHIC VULVOVAGINITIS

REACTIONS (1)
  - Infection [None]

NARRATIVE: CASE EVENT DATE: 20160725
